FAERS Safety Report 8439657-7 (Version None)
Quarter: 2012Q2

REPORT INFORMATION
  Report Type: 
  Country: None (occurrence: None)
  Receive Date: 20120615
  Receipt Date: 20120604
  Transmission Date: 20120825
  Serious: No
  Sender: FDA-Public Use
  Company Number: US-TEVA-341519USA

PATIENT
  Sex: Female
  Weight: 108.96 kg

DRUGS (13)
  1. VENLAFAXINE HCL [Concomitant]
     Indication: DEPRESSION
     Route: 048
  2. FUROSEMIDE [Concomitant]
     Indication: SWELLING
  3. COLECALCIFEROL [Concomitant]
     Indication: VITAMIN SUPPLEMENTATION
  4. NUVIGIL [Suspect]
     Indication: NARCOLEPSY
  5. LEVOTHYROXINE SODIUM [Concomitant]
     Indication: BASEDOW'S DISEASE
     Dosage: .2 MILLIGRAM;
     Route: 048
  6. MULTI-VITAMINS [Concomitant]
     Indication: VITAMIN SUPPLEMENTATION
  7. NUVIGIL [Suspect]
     Indication: CIRCADIAN RHYTHM SLEEP DISORDER
     Dosage: 200 MILLIGRAM;
     Route: 048
     Dates: start: 20110501, end: 20110601
  8. MODAFINIL [Suspect]
     Indication: CIRCADIAN RHYTHM SLEEP DISORDER
     Dosage: 150 MILLIGRAM;
     Route: 048
     Dates: start: 20110501
  9. CELECOXIB [Concomitant]
     Indication: ARTHRITIS
     Dosage: 300 MILLIGRAM;
     Route: 048
  10. OLMESARTAN MEDOXOMIL [Concomitant]
     Indication: CARDIOMEGALY
     Route: 048
  11. MODAFINIL [Suspect]
     Indication: NARCOLEPSY
  12. ALBUTEROL [Concomitant]
     Indication: STRIDOR
  13. DIAZEPAM [Concomitant]
     Indication: ANXIETY
     Route: 048

REACTIONS (5)
  - IRRITABILITY [None]
  - SOMNOLENCE [None]
  - AFFECT LABILITY [None]
  - DRUG EFFECT DECREASED [None]
  - ANGER [None]
